FAERS Safety Report 22971854 (Version 2)
Quarter: 2023Q4

REPORT INFORMATION
  Report Type: Spontaneous
  Country: US (occurrence: US)
  Receive Date: 20230922
  Receipt Date: 20231021
  Transmission Date: 20240109
  Serious: No
  Sender: FDA-Public Use
  Company Number: US-SA-SAC20230920000133

PATIENT
  Age: 2 Year
  Sex: Female

DRUGS (3)
  1. DUPIXENT [Suspect]
     Active Substance: DUPILUMAB
     Indication: Dermatitis atopic
     Dosage: 200 MG, Q4W
     Route: 058
     Dates: start: 20220915
  2. KETOCONAZOLE [Concomitant]
     Active Substance: KETOCONAZOLE
     Indication: Dermatitis atopic
     Dosage: 2 %, PRN
  3. FLUCONAZOLE [Concomitant]
     Active Substance: FLUCONAZOLE
     Indication: Dermatitis atopic
     Dosage: 0.01 %, ,TWICE A DAY FOR UPTO 2 WEEKS

REACTIONS (2)
  - Nasopharyngitis [Recovered/Resolved]
  - Off label use [Unknown]

NARRATIVE: CASE EVENT DATE: 20220915
